FAERS Safety Report 25219952 (Version 1)
Quarter: 2025Q2

REPORT INFORMATION
  Report Type: Spontaneous
  Country: US (occurrence: None)
  Receive Date: 20250418
  Receipt Date: 20250418
  Transmission Date: 20250717
  Serious: Yes (Other)
  Sender: FDA-CTU
  Company Number: None

PATIENT
  Age: 52 Year
  Sex: Female

DRUGS (1)
  1. MYDAYIS [Suspect]
     Active Substance: AMPHETAMINE ASPARTATE\AMPHETAMINE SULFATE\DEXTROAMPHETAMINE SACCHARATE\DEXTROAMPHETAMINE SULFATE
     Indication: Attention deficit hyperactivity disorder
     Dosage: 37.5 MG/MG DAILY ORAL
     Route: 048

REACTIONS (4)
  - Therapeutic response shortened [None]
  - Withdrawal syndrome [None]
  - Somnolence [None]
  - Insomnia [None]

NARRATIVE: CASE EVENT DATE: 20250418
